FAERS Safety Report 16236056 (Version 3)
Quarter: 2020Q3

REPORT INFORMATION
  Report Type: Report from Study
  Country: JP (occurrence: JP)
  Receive Date: 20190425
  Receipt Date: 20200916
  Transmission Date: 20201102
  Serious: Yes (Other)
  Sender: FDA-Public Use
  Company Number: JP-ALEXION PHARMACEUTICALS INC.-A201906095

PATIENT

DRUGS (18)
  1. PHOSRIBBON [Concomitant]
     Indication: PRODUCT USED FOR UNKNOWN INDICATION
     Dosage: 10?25 MG, DAILY
     Route: 065
     Dates: start: 20190313
  2. VITAMIN B COMPLEX [Concomitant]
     Active Substance: CYANOCOBALAMIN\DEXPANTHENOL\NIACINAMIDE\PYRIDOXINE HYDROCHLORIDE\RIBOFLAVIN 5^-PHOSPHATE SODIUM\THIAMINE HYDROCHLORIDE\VITAMIN B COMPLEX
     Indication: HYPOPHOSPHATASIA
     Dosage: 0.3 DF, BID
     Route: 042
     Dates: start: 20190313, end: 20190405
  3. VITAMIN B6 [Concomitant]
     Active Substance: PYRIDOXINE HYDROCHLORIDE
     Indication: HYPOPHOSPHATASIA
     Dosage: 10?20MG/KG/DAY, BID
     Route: 048
     Dates: start: 20190406
  4. PYRIDOXAL [Concomitant]
     Active Substance: PYRIDOXAL
     Indication: PRODUCT USED FOR UNKNOWN INDICATION
     Dosage: 5 MG/KG, BID
     Route: 065
     Dates: start: 20190313
  5. FUROSEMIDE. [Concomitant]
     Active Substance: FUROSEMIDE
     Indication: HYPOPHOSPHATASIA
     Dosage: 1?2 MG/KG, DAILY
     Route: 042
     Dates: start: 20190314, end: 20190820
  6. SODIUM PHOSPHATE [Concomitant]
     Active Substance: SODIUM PHOSPHATE
     Indication: HYPOPHOSPHATASIA
     Dosage: UNK
     Route: 041
     Dates: start: 20190321, end: 20200107
  7. VITAMIN D                          /00107901/ [Concomitant]
     Active Substance: ERGOCALCIFEROL
     Indication: HYPOPHOSPHATASIA
     Dosage: UNK, QD
     Route: 048
     Dates: start: 20190318, end: 20190920
  8. ALFAROL [Concomitant]
     Active Substance: ALFACALCIDOL
     Indication: PRODUCT USED FOR UNKNOWN INDICATION
     Dosage: 0.2?0.6 ML/KG, DAILY
     Route: 065
     Dates: start: 20190313
  9. DOPAMIN                            /00000101/ [Concomitant]
     Active Substance: METHYLDOPA
     Indication: HYPOPHOSPHATASIA
     Dosage: 1?5G, CONTINUOUS INTRAVENOUS INFUSION
     Route: 041
     Dates: start: 20190313, end: 20190321
  10. CALCICOL [Concomitant]
     Active Substance: CALCIUM GLUCONATE
     Indication: PRODUCT USED FOR UNKNOWN INDICATION
     Dosage: 2?10 ML/KG, DAILY
     Route: 065
     Dates: start: 20190313
  11. FENTANYL. [Concomitant]
     Active Substance: FENTANYL
     Indication: HYPOPHOSPHATASIA
     Dosage: 1.2 ?G/KG, CONTINUOUS INTRAVENOUS INFUSION
     Route: 041
     Dates: start: 20190313, end: 20190324
  12. POTASSIUM CANRENOATE [Concomitant]
     Active Substance: CANRENOATE POTASSIUM
     Indication: HYPOPHOSPHATASIA
     Dosage: 1?2 MG/KG/TIME, DAILY
     Route: 042
     Dates: start: 20190314, end: 20190820
  13. HYDROCORTISONE. [Concomitant]
     Active Substance: HYDROCORTISONE
     Indication: HYPOPHOSPHATASIA
     Dosage: UNK
     Route: 042
     Dates: start: 20190313, end: 20190711
  14. DOBUTAMINE [Concomitant]
     Active Substance: DOBUTAMINE HYDROCHLORIDE
     Indication: HYPOPHOSPHATASIA
     Dosage: 1?5G, CONTINUOUS INTRAVENOUS INFUSION
     Route: 041
     Dates: start: 20190313, end: 20190321
  15. CALCIUM COMPOUNDS [Concomitant]
     Indication: HYPOPHOSPHATASIA
     Dosage: UNK
     Route: 041
     Dates: start: 20190315, end: 20191218
  16. STRENSIQ [Suspect]
     Active Substance: ASFOTASE ALFA
     Indication: HYPOPHOSPHATASIA
     Dosage: 2 MG/KG, TIW
     Route: 058
     Dates: start: 20190320
  17. ALDACTONE [Concomitant]
     Active Substance: SPIRONOLACTONE
     Indication: PRODUCT USED FOR UNKNOWN INDICATION
     Dosage: 2 MG/KG, DAILY
     Route: 065
     Dates: start: 20190313
  18. MIDAZOLAM. [Concomitant]
     Active Substance: MIDAZOLAM
     Indication: HYPOPHOSPHATASIA
     Dosage: 1.5 MG/KG, CONTINUOUS INTRAVENOUS INFUSION
     Route: 041
     Dates: start: 20190313, end: 20190918

REACTIONS (9)
  - Pneumonia [Unknown]
  - Dysphagia [Unknown]
  - Pulmonary fibrosis [Not Recovered/Not Resolved]
  - Hypercalciuria [Unknown]
  - Growth disorder [Unknown]
  - Seizure [Unknown]
  - Motor developmental delay [Unknown]
  - Pleural effusion [Recovered/Resolved]
  - Developmental delay [Unknown]

NARRATIVE: CASE EVENT DATE: 20190401
